FAERS Safety Report 5743181-X (Version None)
Quarter: 2008Q2

REPORT INFORMATION
  Report Type: 
  Country: None (occurrence: None)
  Receive Date: 20080519
  Receipt Date: 20080512
  Transmission Date: 20081010
  Serious: No
  Sender: FDA-Public Use
  Company Number: US-BOEHRINGER INGELHEIM GMBH, GERMANY-2008-BP-05929BP

PATIENT
  Age: 93 Year
  Sex: Female

DRUGS (6)
  1. AGGRENOX [Suspect]
     Indication: CEREBROVASCULAR ACCIDENT PROPHYLAXIS
  2. TOPROL-XL [Concomitant]
  3. COUMADIN [Concomitant]
  4. OXYGEN [Concomitant]
  5. ASPIRIN [Concomitant]
  6. SYNTHROID [Concomitant]

REACTIONS (2)
  - ADVERSE DRUG REACTION [None]
  - HEADACHE [None]
